FAERS Safety Report 19138058 (Version 1)
Quarter: 2021Q2

REPORT INFORMATION
  Report Type: Spontaneous
  Country: US (occurrence: US)
  Receive Date: 20210415
  Receipt Date: 20210415
  Transmission Date: 20210717
  Serious: No
  Sender: FDA-Public Use
  Company Number: US-JNJFOC-20210409802

PATIENT
  Sex: Female

DRUGS (5)
  1. IBUPROFEN. [Suspect]
     Active Substance: IBUPROFEN
     Indication: NAUSEA
     Route: 065
     Dates: start: 202104
  2. IBUPROFEN. [Suspect]
     Active Substance: IBUPROFEN
     Indication: FATIGUE
  3. COVID?19 VACCINE NOS. [Concomitant]
     Active Substance: COVID-19 VACCINE NOS
     Indication: PRODUCT USED FOR UNKNOWN INDICATION
     Route: 065
     Dates: start: 20210401
  4. IBUPROFEN. [Suspect]
     Active Substance: IBUPROFEN
     Indication: VOMITING
  5. IBUPROFEN. [Suspect]
     Active Substance: IBUPROFEN
     Indication: DIZZINESS

REACTIONS (1)
  - Product use in unapproved indication [Unknown]

NARRATIVE: CASE EVENT DATE: 202104
